FAERS Safety Report 8177102-X (Version None)
Quarter: 2012Q1

REPORT INFORMATION
  Report Type: 
  Country: None (occurrence: None)
  Receive Date: 20120301
  Receipt Date: 20120227
  Transmission Date: 20120608
  Serious: Yes (Other)
  Sender: FDA-Public Use
  Company Number: US-GLAXOSMITHKLINE-A0963165A

PATIENT
  Age: 21 Year
  Sex: Male
  Weight: 68.2 kg

DRUGS (1)
  1. LAMICTAL [Suspect]
     Indication: BIPOLAR II DISORDER
     Dosage: 100MG UNKNOWN
     Route: 048
     Dates: start: 20111001, end: 20120101

REACTIONS (4)
  - THERAPEUTIC RESPONSE UNEXPECTED [None]
  - METAMORPHOPSIA [None]
  - DIPLOPIA [None]
  - VISUAL IMPAIRMENT [None]
